FAERS Safety Report 20451016 (Version 1)
Quarter: 2022Q1

REPORT INFORMATION
  Report Type: Spontaneous
  Country: US (occurrence: None)
  Receive Date: 20220209
  Receipt Date: 20220209
  Transmission Date: 20220423
  Serious: No
  Sender: FDA-Public Use
  Company Number: None

PATIENT
  Sex: Male
  Weight: 68.4 kg

DRUGS (6)
  1. TEMOZOLOMIDE [Suspect]
     Active Substance: TEMOZOLOMIDE
     Indication: Brain neoplasm malignant
     Dosage: FREQUENCY : TWICE A DAY;?
     Route: 048
  2. ACIPHEX [Concomitant]
  3. NIFEdipine ER [Concomitant]
  4. BISOPROLOL FUMARATE [Concomitant]
  5. DEXAMETHASONE [Concomitant]
     Active Substance: DEXAMETHASONE
  6. LEVETIRACETAM [Concomitant]

REACTIONS (1)
  - Hospice care [None]
